FAERS Safety Report 25720497 (Version 1)
Quarter: 2025Q3

REPORT INFORMATION
  Report Type: Spontaneous
  Country: US (occurrence: US)
  Receive Date: 20250825
  Receipt Date: 20250825
  Transmission Date: 20251020
  Serious: Yes (Life-Threatening, Hospitalization, Other)
  Sender: AMGEN
  Company Number: US-AMGEN-USASP2025164974

PATIENT
  Age: 36 Year
  Sex: Male

DRUGS (7)
  1. TALIMOGENE LAHERPAREPVEC [Suspect]
     Active Substance: TALIMOGENE LAHERPAREPVEC
     Indication: Skin wrinkling
     Route: 065
     Dates: start: 202112
  2. TALIMOGENE LAHERPAREPVEC [Suspect]
     Active Substance: TALIMOGENE LAHERPAREPVEC
     Indication: Off label use
  3. PREDNISONE [Suspect]
     Active Substance: PREDNISONE
     Indication: Transplant rejection
     Route: 065
     Dates: start: 2022
  4. CEMIPLIMAB [Concomitant]
     Active Substance: CEMIPLIMAB
     Indication: Transplant rejection
     Dosage: 350 MILLIGRAM, Q3WK
     Route: 040
  5. TACROLIMUS [Concomitant]
     Active Substance: TACROLIMUS
     Indication: Transplant rejection
  6. CARBOPLATIN [Concomitant]
     Active Substance: CARBOPLATIN
     Dosage: UNK UNK, QWK
     Dates: start: 202206
  7. PACLITAXEL [Concomitant]
     Active Substance: PACLITAXEL
     Dosage: 60 MILLIGRAM/SQ. METER, QWK
     Dates: start: 202206

REACTIONS (5)
  - Respiratory failure [Unknown]
  - Febrile neutropenia [Recovering/Resolving]
  - Squamous cell carcinoma of skin [Recovering/Resolving]
  - Off label use [Unknown]
  - Therapy non-responder [Unknown]

NARRATIVE: CASE EVENT DATE: 20211201
